FAERS Safety Report 7540901-9 (Version None)
Quarter: 2011Q2

REPORT INFORMATION
  Report Type: 
  Country: None (occurrence: None)
  Receive Date: 20110610
  Receipt Date: 20110608
  Transmission Date: 20111010
  Serious: Yes (Hospitalization, Other)
  Sender: FDA-Public Use
  Company Number: US-TEVA-285239USA

PATIENT
  Sex: Female
  Weight: 75.364 kg

DRUGS (2)
  1. PARAGARD T 380A [Suspect]
     Indication: CONTRACEPTION
     Route: 015
     Dates: start: 20051220, end: 20060619
  2. NORGESTREL/ETHINYL ESTRADIOL [Suspect]
     Indication: VAGINAL HAEMORRHAGE
     Dates: start: 20060522

REACTIONS (2)
  - CEREBROVASCULAR ACCIDENT [None]
  - VAGINAL HAEMORRHAGE [None]
